FAERS Safety Report 8440518-8 (Version None)
Quarter: 2012Q2

REPORT INFORMATION
  Report Type: 
  Country: None (occurrence: None)
  Receive Date: 20120615
  Receipt Date: 20120606
  Transmission Date: 20120825
  Serious: Yes (Other)
  Sender: FDA-Public Use
  Company Number: US-ABBOTT-12P-163-0943062-00

PATIENT
  Sex: Male
  Weight: 77.18 kg

DRUGS (3)
  1. NIASPAN [Suspect]
     Indication: LOW DENSITY LIPOPROTEIN INCREASED
  2. NIASPAN [Suspect]
     Indication: BLOOD CHOLESTEROL
     Dosage: EVERY NIGHT
     Dates: start: 20120530, end: 20120604
  3. SIMVASTATIN [Concomitant]
     Indication: PRODUCT USED FOR UNKNOWN INDICATION

REACTIONS (8)
  - INSOMNIA [None]
  - FEELING HOT [None]
  - DYSURIA [None]
  - HYPOTENSION [None]
  - URINARY INCONTINENCE [None]
  - HYPERHIDROSIS [None]
  - NAUSEA [None]
  - LOSS OF CONSCIOUSNESS [None]
